FAERS Safety Report 9401123 (Version 2)
Quarter: 2013Q3

REPORT INFORMATION
  Report Type: Report from Study
  Country: US (occurrence: US)
  Receive Date: 20130715
  Receipt Date: 20130820
  Transmission Date: 20140515
  Serious: Yes (Hospitalization)
  Sender: FDA-Public Use
  Company Number: US-ACTELION-A-US2013-85636

PATIENT
  Age: 53 Year
  Sex: Male

DRUGS (2)
  1. VELETRI [Suspect]
     Indication: PULMONARY ARTERIAL HYPERTENSION
     Dosage: 59.5 NG/KG, PER MIN
     Route: 042
     Dates: start: 20111031
  2. SILDENAFIL [Concomitant]

REACTIONS (4)
  - Fall [Unknown]
  - Hip fracture [Unknown]
  - Fluid retention [Unknown]
  - Musculoskeletal discomfort [Unknown]
